FAERS Safety Report 8604403-0 (Version None)
Quarter: 2012Q3

REPORT INFORMATION
  Report Type: 
  Country: None (occurrence: None)
  Receive Date: 20120820
  Receipt Date: 20120808
  Transmission Date: 20120928
  Serious: Yes (Other)
  Sender: FDA-Public Use
  Company Number: DE-US-EMD SERONO, INC.-7079424

PATIENT
  Sex: Male
  Weight: 19 kg

DRUGS (7)
  1. SAIZEN [Suspect]
     Indication: GROWTH HORMONE DEFICIENCY
     Route: 058
     Dates: end: 20080116
  2. SAIZEN [Suspect]
     Route: 058
     Dates: end: 20080826
  3. SAIZEN [Suspect]
     Route: 058
     Dates: end: 20090408
  4. SAIZEN [Suspect]
     Route: 058
     Dates: end: 20101010
  5. SAIZEN [Suspect]
     Route: 058
     Dates: end: 20110509
  6. SAIZEN [Suspect]
     Route: 058
     Dates: end: 20080626
  7. LEVOTHYROXINE SODIUM [Concomitant]
     Indication: AUTOIMMUNE THYROIDITIS

REACTIONS (1)
  - PITUITARY TUMOUR BENIGN [None]
